FAERS Safety Report 6187727-9 (Version None)
Quarter: 2009Q2

REPORT INFORMATION
  Report Type: 
  Country: None (occurrence: None)
  Receive Date: 20090513
  Receipt Date: 20090430
  Transmission Date: 20091009
  Serious: Yes (Disabling)
  Sender: FDA-Public Use
  Company Number: PT-PFIZER INC-2009207310

PATIENT
  Age: 55 Year

DRUGS (3)
  1. LYRICA [Suspect]
     Indication: NEURALGIA
     Dosage: 75 MG, UNK
     Route: 048
     Dates: start: 20090403, end: 20090407
  2. LEVOCETIRIZINE DIHYDROCHLORIDE [Concomitant]
     Indication: RHINITIS ALLERGIC
     Dosage: 5 MG, 1X/DAY
     Route: 048
     Dates: start: 20070101
  3. ROSUVASTATIN CALCIUM [Concomitant]
     Indication: HYPERCHOLESTEROLAEMIA
     Dosage: 5 MG, 1X/DAY
     Route: 048
     Dates: start: 20060101

REACTIONS (7)
  - ASTHENIA [None]
  - EYE OEDEMA [None]
  - FATIGUE [None]
  - HYPOREFLEXIA [None]
  - LACRIMATION INCREASED [None]
  - MUSCLE SPASMS [None]
  - SOMNOLENCE [None]
